FAERS Safety Report 7708350-8 (Version None)
Quarter: 2011Q3

REPORT INFORMATION
  Report Type: 
  Country: None (occurrence: None)
  Receive Date: 20110819
  Receipt Date: 20110810
  Transmission Date: 20111222
  Serious: Yes (Hospitalization)
  Sender: FDA-Public Use
  Company Number: USA/USA/11/0020692

PATIENT
  Age: 43 Year
  Sex: Male

DRUGS (2)
  1. TERBINAFINE HCL [Suspect]
     Indication: NAIL INFECTION
  2. RISPERDAL CONSTA [Suspect]
     Indication: SCHIZOAFFECTIVE DISORDER

REACTIONS (6)
  - DRUG INTERACTION [None]
  - PSYCHIATRIC DECOMPENSATION [None]
  - EXTRAPYRAMIDAL DISORDER [None]
  - NAIL INFECTION [None]
  - PERSECUTORY DELUSION [None]
  - HALLUCINATION, AUDITORY [None]
